FAERS Safety Report 4549168-7 (Version None)
Quarter: 2005Q1

REPORT INFORMATION
  Report Type: 
  Country: None (occurrence: None)
  Receive Date: 20050106
  Receipt Date: 20050106
  Transmission Date: 20050727
  Serious: No
  Sender: FDA-Public Use
  Company Number: None

PATIENT
  Age: 58 Year

DRUGS (3)
  1. GEMCITABINE [Suspect]
  2. PACLITAXEL [Suspect]
  3. CARBOPLATIN [Suspect]

REACTIONS (1)
  - NO ADVERSE EFFECT [None]
